FAERS Safety Report 9280317 (Version 4)
Quarter: 2013Q3

REPORT INFORMATION
  Report Type: Spontaneous
  Country: DE (occurrence: DE)
  Receive Date: 20130509
  Receipt Date: 20130820
  Transmission Date: 20140515
  Serious: Yes (Hospitalization)
  Sender: FDA-Public Use
  Company Number: DE-ELI_LILLY_AND_COMPANY-DE201305000578

PATIENT
  Age: 67 Year
  Sex: Female

DRUGS (5)
  1. FORSTEO [Suspect]
     Indication: PROPHYLAXIS
     Dosage: 20 UG, UNKNOWN
     Route: 058
     Dates: start: 201301, end: 20130210
  2. TARGIN [Suspect]
     Dosage: UNK, UNKNOWN
     Route: 065
  3. L THYROXIN [Concomitant]
     Dosage: 75 UG, QD
  4. OMEPRAZOL [Concomitant]
     Dosage: 20 MG, QD
  5. ARCOXIA [Concomitant]
     Dosage: 60 MG, QD

REACTIONS (5)
  - Drug-induced liver injury [Unknown]
  - Thoracic vertebral fracture [Unknown]
  - Lumbar vertebral fracture [Unknown]
  - Pain [Unknown]
  - Urinary tract infection [Unknown]
